FAERS Safety Report 10627792 (Version 1)
Quarter: 2014Q4

REPORT INFORMATION
  Report Type: Spontaneous
  Country: DE (occurrence: DE)
  Receive Date: 20141205
  Receipt Date: 20141205
  Transmission Date: 20150529
  Serious: Yes (Hospitalization, Other)
  Sender: FDA-Public Use
  Company Number: DE-BIOGENIDEC-2014BI126438

PATIENT
  Age: 57 Year
  Sex: Female

DRUGS (2)
  1. IBUPROFEN. [Concomitant]
     Active Substance: IBUPROFEN
  2. TECFIDERA [Suspect]
     Active Substance: DIMETHYL FUMARATE
     Indication: MULTIPLE SCLEROSIS
     Route: 048
     Dates: start: 20140415

REACTIONS (4)
  - Procedural pain [Not Recovered/Not Resolved]
  - Drug interaction [Recovered/Resolved]
  - Circulatory collapse [Recovered/Resolved]
  - Medical device removal [Recovered/Resolved]

NARRATIVE: CASE EVENT DATE: 20141119
